FAERS Safety Report 16206726 (Version 1)
Quarter: 2019Q2

REPORT INFORMATION
  Report Type: Spontaneous
  Country: US (occurrence: US)
  Receive Date: 20190313
  Receipt Date: 20190313
  Transmission Date: 20190711
  Serious: No
  Sender: FDA-Public Use
  Company Number: None

PATIENT
  Age: 67 Year
  Sex: Female

DRUGS (1)
  1. CUVITRU [Suspect]
     Active Substance: HUMAN IMMUNOGLOBULIN G
     Indication: CONGENITAL HYPOGAMMAGLOBULINAEMIA
     Route: 058
     Dates: start: 20170509

REACTIONS (5)
  - Asthenia [None]
  - Joint dislocation [None]
  - Ill-defined disorder [None]
  - Gait inability [None]
  - Fatigue [None]

NARRATIVE: CASE EVENT DATE: 20190227
